FAERS Safety Report 9696578 (Version 1)
Quarter: 2013Q4

REPORT INFORMATION
  Report Type: Spontaneous
  Country: GB (occurrence: None)
  Receive Date: 20131115
  Receipt Date: 20131115
  Transmission Date: 20140711
  Serious: Yes (Disabling, Other)
  Sender: FDA-Public Use
  Company Number: AUR-APL-2013-09463

PATIENT
  Age: 54 Year
  Sex: Female

DRUGS (7)
  1. ALENDRONIC ACID (ALENDRONIC ACID) [Suspect]
     Route: 048
     Dates: start: 20130110, end: 20130124
  2. AMITRIPTYLINE(AMITRIPTYLINE) [Concomitant]
  3. CALCICHEW D3(LEKOVIT CA) [Concomitant]
  4. CITALOPRAM(CITALOPRAM) [Concomitant]
  5. OMEPRAZOLE(OMEPRAZOLE) [Concomitant]
  6. SERETIDE(SERETIDE) [Concomitant]
  7. VENTOLIN(SALBUTAMOL) [Concomitant]

REACTIONS (5)
  - Nightmare [None]
  - Terminal insomnia [None]
  - Sleep disorder [None]
  - Pruritus [None]
  - Depression [None]
